FAERS Safety Report 6720313-8 (Version None)
Quarter: 2010Q2

REPORT INFORMATION
  Report Type: 
  Country: None (occurrence: None)
  Receive Date: 20100507
  Receipt Date: 20100423
  Transmission Date: 20101027
  Serious: Yes (Life-Threatening, Hospitalization)
  Sender: FDA-Public Use
  Company Number: PAR_02883_2009

PATIENT
  Age: 79 Year
  Sex: Female

DRUGS (4)
  1. IBUPROFEN [Suspect]
     Indication: SCIATICA
     Dosage: 1200 MG, ORAL
     Route: 048
     Dates: start: 20080401, end: 20081024
  2. GINGIUM HEXAL - GINKGO BILBOA EXTRACT (GINKGO BILBOA EXTRACT) [Suspect]
     Indication: DEMENTIA
     Dosage: 80 MG, ORAL
     Route: 048
     Dates: start: 20050101, end: 20081024
  3. FOLSAEURE 'HEVERT' [Concomitant]
  4. LACHSOEL KAPSELN (FISH OIL) [Concomitant]

REACTIONS (8)
  - ACTIVATED PARTIAL THROMBOPLASTIN TIME SHORTENED [None]
  - BLOOD PRESSURE DIASTOLIC DECREASED [None]
  - DUODENAL ULCER HAEMORRHAGE [None]
  - HAEMOGLOBIN DECREASED [None]
  - MELAENA [None]
  - NAUSEA [None]
  - THROMBIN TIME PROLONGED [None]
  - VOMITING [None]
